FAERS Safety Report 4335967-3 (Version None)
Quarter: 2004Q2

REPORT INFORMATION
  Report Type: 
  Country: None (occurrence: None)
  Receive Date: 20040406
  Receipt Date: 20040323
  Transmission Date: 20050107
  Serious: Yes (Hospitalization)
  Sender: FDA-Public Use
  Company Number: 04P-056-0254510-00

PATIENT
  Age: 80 Year
  Sex: Male

DRUGS (2)
  1. DEPAKENE [Suspect]
     Indication: ABNORMAL BEHAVIOUR
     Dosage: 500 MG, 2 IN 1 D, PER ORAL
     Route: 048
     Dates: start: 20040206, end: 20040213
  2. RISPERIDONE [Suspect]
     Indication: ABNORMAL BEHAVIOUR
     Dosage: 2 MG, 1 IN 1 D, ORAL
     Route: 048
     Dates: start: 20040206, end: 20040211

REACTIONS (12)
  - APHASIA [None]
  - COMA [None]
  - DEHYDRATION [None]
  - EXTRAPYRAMIDAL DISORDER [None]
  - FLUID INTAKE REDUCED [None]
  - HYPERNATRAEMIA [None]
  - JUDGEMENT IMPAIRED [None]
  - MARKEDLY REDUCED DIETARY INTAKE [None]
  - MEMORY IMPAIRMENT [None]
  - MYOCLONUS [None]
  - RENAL FAILURE [None]
  - TREMOR [None]
